FAERS Safety Report 23433156 (Version 1)
Quarter: 2024Q1

REPORT INFORMATION
  Report Type: Spontaneous
  Country: US (occurrence: US)
  Receive Date: 20240123
  Receipt Date: 20240123
  Transmission Date: 20240410
  Serious: No
  Sender: FDA-Public Use
  Company Number: US-SA-SAC20240117000101

PATIENT
  Age: 35 Year
  Sex: Female
  Weight: 40.8 kg

DRUGS (6)
  1. DUPIXENT [Suspect]
     Active Substance: DUPILUMAB
     Indication: Asthma
     Dosage: 300 MG QOW
     Route: 058
     Dates: start: 202307
  2. DUPIXENT [Suspect]
     Active Substance: DUPILUMAB
     Indication: Eczema
  3. CEQUA [Suspect]
     Active Substance: CYCLOSPORINE
     Dosage: UNK
  4. LEVOTHYROXINE [Concomitant]
     Active Substance: LEVOTHYROXINE\LEVOTHYROXINE SODIUM
  5. ALBUTEROL SULFATE [Concomitant]
     Active Substance: ALBUTEROL SULFATE
  6. TRIAMCINOLONE [Concomitant]
     Active Substance: TRIAMCINOLONE

REACTIONS (7)
  - Lacrimation increased [Unknown]
  - Eye discharge [Unknown]
  - Skin irritation [Unknown]
  - Rhinorrhoea [Unknown]
  - Eczema [Unknown]
  - Dry eye [Unknown]
  - Eye pain [Unknown]

NARRATIVE: CASE EVENT DATE: 20230701
